FAERS Safety Report 6897922-9 (Version None)
Quarter: 2010Q3

REPORT INFORMATION
  Report Type: 
  Country: None (occurrence: None)
  Receive Date: 20100802
  Receipt Date: 20070804
  Transmission Date: 20110219
  Serious: No
  Sender: FDA-Public Use
  Company Number: US-PFIZER INC-2007065762

PATIENT
  Sex: Female
  Weight: 54 kg

DRUGS (16)
  1. LYRICA [Suspect]
     Indication: NEUROPATHY PERIPHERAL
     Dates: start: 20070804
  2. KLONOPIN [Concomitant]
  3. VITAMINS [Concomitant]
  4. PERGOLIDE [Concomitant]
  5. ZOLOFT [Concomitant]
  6. COMPAZINE [Concomitant]
  7. PROPRANOLOL [Concomitant]
  8. LISINOPRIL [Concomitant]
  9. ZYRTEC [Concomitant]
  10. PREVACID [Concomitant]
  11. TYLENOL [Concomitant]
  12. GLIPIZIDE [Concomitant]
  13. GLUCOPHAGE [Concomitant]
  14. ALL OTHER THERAPEUTIC PRODUCTS [Concomitant]
  15. AZELASTINE HCL [Concomitant]
  16. NASAL PREPARATIONS [Concomitant]

REACTIONS (1)
  - PALPITATIONS [None]
